FAERS Safety Report 23892326 (Version 1)
Quarter: 2024Q2

REPORT INFORMATION
  Report Type: Spontaneous
  Country: JP (occurrence: JP)
  Receive Date: 20240524
  Receipt Date: 20240524
  Transmission Date: 20240716
  Serious: Yes (Other)
  Sender: FDA-Public Use
  Company Number: JP-DSJP-DSJ-2024-120678

PATIENT

DRUGS (2)
  1. DENOSUMAB [Suspect]
     Active Substance: DENOSUMAB
     Indication: Product used for unknown indication
     Dosage: UNK, FIRST DOSE
     Route: 065
     Dates: start: 202311, end: 202311
  2. DENOSUMAB [Suspect]
     Active Substance: DENOSUMAB
     Dosage: UNK, SECOND DOSE
     Route: 065
     Dates: start: 20240514

REACTIONS (1)
  - Cerebral infarction [Unknown]
